FAERS Safety Report 7169156-4 (Version None)
Quarter: 2010Q4

REPORT INFORMATION
  Report Type: 
  Country: None (occurrence: None)
  Receive Date: 20101216
  Receipt Date: 20101203
  Transmission Date: 20110411
  Serious: No
  Sender: FDA-Public Use
  Company Number: US-BAYER-2010-004795

PATIENT
  Sex: Female
  Weight: 74.376 kg

DRUGS (9)
  1. ULTRAVIST INJECTION PHARMACY BULK PACKAGE [Suspect]
     Indication: COMPUTERISED TOMOGRAM THORAX
     Dosage: 100 ML, ONCE
     Route: 042
     Dates: start: 20101203, end: 20101203
  2. ULTRAVIST INJECTION PHARMACY BULK PACKAGE [Suspect]
  3. ULTRAVIST INJECTION PHARMACY BULK PACKAGE [Suspect]
     Indication: COUGH
  4. ULTRAVIST INJECTION PHARMACY BULK PACKAGE [Suspect]
     Indication: CHEST PAIN
  5. PULMICORT [Concomitant]
     Dosage: UNK
  6. SINGULAIR [Concomitant]
     Dosage: UNK
  7. COMBIVENT [Concomitant]
     Dosage: UNK
  8. NEXIUM [Concomitant]
     Dosage: UNK
  9. ADVIL [Concomitant]
     Dosage: UNK

REACTIONS (3)
  - FEELING ABNORMAL [None]
  - PRURITUS [None]
  - URTICARIA [None]
